FAERS Safety Report 6677970-4 (Version None)
Quarter: 2010Q2

REPORT INFORMATION
  Report Type: 
  Country: None (occurrence: None)
  Receive Date: 20100412
  Receipt Date: 20100331
  Transmission Date: 20101027
  Serious: No
  Sender: FDA-Public Use
  Company Number: CA-ELI_LILLY_AND_COMPANY-CA201004000309

PATIENT
  Sex: Male

DRUGS (3)
  1. ZYPREXA [Suspect]
  2. RISPERDAL CONSTA [Concomitant]
     Indication: SCHIZOAFFECTIVE DISORDER BIPOLAR TYPE
     Dosage: UNK, UNK
     Dates: start: 20060101
  3. EPIVAL [Concomitant]

REACTIONS (6)
  - LYMPHADENOPATHY [None]
  - NEUTROPENIA [None]
  - OBESITY [None]
  - PANCYTOPENIA [None]
  - POIKILOCYTOSIS [None]
  - WHITE BLOOD CELL COUNT DECREASED [None]
